FAERS Safety Report 5070360-X (Version None)
Quarter: 2006Q3

REPORT INFORMATION
  Report Type: 
  Country: None (occurrence: None)
  Receive Date: 20060731
  Receipt Date: 20060721
  Transmission Date: 20061208
  Serious: Yes (Death, Other)
  Sender: FDA-Public Use
  Company Number: 2006-06-0534

PATIENT
  Age: 85 Year
  Sex: Female

DRUGS (1)
  1. CELESTONE [Suspect]
     Indication: RHEUMATOID ARTHRITIS
     Dosage: 1 MG; ORAL
     Route: 048
     Dates: start: 20000101

REACTIONS (16)
  - BINOCULAR EYE MOVEMENT DISORDER [None]
  - BLOOD BETA-D-GLUCAN INCREASED [None]
  - BONE DISORDER [None]
  - BRAIN NEOPLASM [None]
  - CATARACT [None]
  - DEPRESSED LEVEL OF CONSCIOUSNESS [None]
  - DISORDER OF ORBIT [None]
  - EYE MOVEMENT DISORDER [None]
  - EYELID PTOSIS [None]
  - HEADACHE [None]
  - MASS [None]
  - OPTIC ATROPHY [None]
  - PUPILLARY REFLEX IMPAIRED [None]
  - SINUSITIS ASPERGILLUS [None]
  - SPHENOID SINUS OPERATION [None]
  - VISUAL ACUITY REDUCED [None]
